FAERS Safety Report 5163913-1 (Version None)
Quarter: 2006Q4

REPORT INFORMATION
  Report Type: 
  Country: None (occurrence: None)
  Receive Date: 20061204
  Receipt Date: 20061002
  Transmission Date: 20070319
  Serious: Yes (Other)
  Sender: FDA-Public Use
  Company Number: 2006UW19120

PATIENT
  Age: 51 Year
  Sex: Female
  Weight: 88.5 kg

DRUGS (2)
  1. SEROQUEL [Suspect]
     Indication: SCHIZOPHRENIA
     Route: 048
  2. SEROQUEL [Suspect]
     Route: 048
     Dates: start: 20020101, end: 20050101

REACTIONS (6)
  - DRUG DEPENDENCE [None]
  - HYPERTENSION [None]
  - LABORATORY TEST ABNORMAL [None]
  - PANCREATECTOMY [None]
  - TREMOR [None]
  - WEIGHT INCREASED [None]
